FAERS Safety Report 4635671-8 (Version None)
Quarter: 2005Q2

REPORT INFORMATION
  Report Type: 
  Country: None (occurrence: None)
  Receive Date: 20050414
  Receipt Date: 20050331
  Transmission Date: 20051028
  Serious: Yes (Hospitalization)
  Sender: FDA-Public Use
  Company Number: HQWYE331614FEB05

PATIENT
  Age: 64 Year
  Sex: Female

DRUGS (9)
  1. RAPAMUNE [Suspect]
     Indication: PROPHYLAXIS AGAINST TRANSPLANT REJECTION
     Dosage: SEE IMAGE
     Route: 048
     Dates: start: 20040615, end: 20040816
  2. RAPAMUNE [Suspect]
     Indication: PROPHYLAXIS AGAINST TRANSPLANT REJECTION
     Dosage: SEE IMAGE
     Route: 048
     Dates: start: 20040817, end: 20050215
  3. RAPAMUNE [Suspect]
     Indication: PROPHYLAXIS AGAINST TRANSPLANT REJECTION
     Dosage: SEE IMAGE
     Route: 048
     Dates: start: 20050216, end: 20050217
  4. RAPAMUNE [Suspect]
     Indication: PROPHYLAXIS AGAINST TRANSPLANT REJECTION
     Dosage: SEE IMAGE
     Route: 048
     Dates: start: 20050220, end: 20050303
  5. RAPAMUNE [Suspect]
     Indication: PROPHYLAXIS AGAINST TRANSPLANT REJECTION
     Dosage: SEE IMAGE
     Route: 048
     Dates: start: 20050304, end: 20050307
  6. RAPAMUNE [Suspect]
     Indication: PROPHYLAXIS AGAINST TRANSPLANT REJECTION
     Dosage: SEE IMAGE
     Route: 048
     Dates: start: 20050308
  7. RAPAMUNE [Suspect]
  8. AZATHIOPRINE [Concomitant]
  9. . [Concomitant]

REACTIONS (10)
  - COUGH [None]
  - DIARRHOEA [None]
  - DRUG LEVEL INCREASED [None]
  - EPISTAXIS [None]
  - ERYSIPELAS [None]
  - HAEMOPTYSIS [None]
  - HYPERHIDROSIS [None]
  - IMMUNOSUPPRESSION [None]
  - LABORATORY TEST INTERFERENCE [None]
  - VOMITING [None]
